FAERS Safety Report 6253062-3 (Version None)
Quarter: 2009Q2

REPORT INFORMATION
  Report Type: 
  Country: None (occurrence: None)
  Receive Date: 20090629
  Receipt Date: 20090612
  Transmission Date: 20091009
  Serious: Yes (Other)
  Sender: FDA-Public Use
  Company Number: 2009-198723-NL

PATIENT
  Age: 42 Year
  Sex: Female

DRUGS (1)
  1. PUREGON [Suspect]
     Indication: INFERTILITY

REACTIONS (5)
  - ABORTION SPONTANEOUS [None]
  - CERVICAL INCOMPETENCE [None]
  - INJURY [None]
  - PREGNANCY [None]
  - THERAPEUTIC RESPONSE DECREASED [None]
